FAERS Safety Report 9089315 (Version 3)
Quarter: 2013Q2

REPORT INFORMATION
  Report Type: Spontaneous
  Country: IT (occurrence: IT)
  Receive Date: 20130201
  Receipt Date: 20130517
  Transmission Date: 20140414
  Serious: Yes (Other)
  Sender: FDA-Public Use
  Company Number: IT-JNJFOC-20130113323

PATIENT
  Age: 42 Year
  Sex: Female

DRUGS (5)
  1. TOPAMAX [Suspect]
     Indication: EPILEPSY
     Route: 048
     Dates: start: 20130123, end: 20130123
  2. ALPRAZOLAM [Suspect]
     Indication: ANXIETY
     Route: 048
     Dates: start: 20120123, end: 20130123
  3. MINIAS [Suspect]
     Indication: INSOMNIA
     Route: 065
     Dates: start: 20130123, end: 20130123
  4. EUTIROX [Concomitant]
     Indication: HYPOTHYROIDISM
     Route: 065
  5. PAROXETINE [Concomitant]
     Indication: PRODUCT USED FOR UNKNOWN INDICATION
     Route: 065

REACTIONS (2)
  - Self injurious behaviour [Recovering/Resolving]
  - Intentional overdose [Recovering/Resolving]
